FAERS Safety Report 6124522-0 (Version None)
Quarter: 2009Q1

REPORT INFORMATION
  Report Type: 
  Country: None (occurrence: None)
  Receive Date: 20090319
  Receipt Date: 20090311
  Transmission Date: 20090719
  Serious: Yes (Hospitalization, Other)
  Sender: FDA-Public Use
  Company Number: US-ELI_LILLY_AND_COMPANY-US200903003272

PATIENT
  Age: 71 Year
  Sex: Female

DRUGS (4)
  1. HUMALOG MIX 75/25 [Suspect]
     Indication: DIABETES MELLITUS
     Dosage: 34 U, UNK
  2. HUMALOG MIX 75/25 [Suspect]
     Dosage: 34 U, UNK
  3. OXYGEN [Concomitant]
     Dates: start: 20030101
  4. PLAVIX [Concomitant]

REACTIONS (6)
  - BURSITIS [None]
  - CHRONIC OBSTRUCTIVE PULMONARY DISEASE [None]
  - DYSPNOEA [None]
  - FATIGUE [None]
  - MYOCARDIAL INFARCTION [None]
  - STENT PLACEMENT [None]
